FAERS Safety Report 9378164 (Version 4)
Quarter: 2013Q4

REPORT INFORMATION
  Report Type: Spontaneous
  Country: GB (occurrence: GB)
  Receive Date: 20130701
  Receipt Date: 20131223
  Transmission Date: 20140711
  Serious: Yes (Hospitalization)
  Sender: FDA-Public Use
  Company Number: GB-GLAXOSMITHKLINE-B0902851A

PATIENT
  Age: 49 Year
  Sex: Male
  Weight: 92 kg

DRUGS (4)
  1. AVANDIA [Suspect]
     Indication: BLOOD GLUCOSE
     Dosage: 8MG PER DAY
     Route: 065
     Dates: start: 2002
  2. METFORMIN [Concomitant]
     Indication: BLOOD GLUCOSE
     Dosage: 500MG THREE TIMES PER DAY
  3. ATORVASTATIN [Concomitant]
     Dosage: 20MG PER DAY
  4. ATENOLOL [Concomitant]
     Dosage: 50MG PER DAY

REACTIONS (1)
  - Myocardial infarction [Recovering/Resolving]
